FAERS Safety Report 5718698-4 (Version None)
Quarter: 2008Q2

REPORT INFORMATION
  Report Type: 
  Country: None (occurrence: None)
  Receive Date: 20080423
  Receipt Date: 20080416
  Transmission Date: 20081010
  Serious: Yes (Death, Other)
  Sender: FDA-Public Use
  Company Number: 056-C5013-08041139

PATIENT
  Age: 60 Year
  Sex: Female

DRUGS (1)
  1. CC-5013\PLACEBO (LENALIDOMIDE) [Suspect]
     Indication: MULTIPLE MYELOMA

REACTIONS (3)
  - ACUTE MYELOID LEUKAEMIA [None]
  - MALIGNANT NEOPLASM PROGRESSION [None]
  - MYELODYSPLASTIC SYNDROME [None]
